FAERS Safety Report 23843238 (Version 1)
Quarter: 2024Q2

REPORT INFORMATION
  Report Type: Spontaneous
  Country: US (occurrence: None)
  Receive Date: 20240510
  Receipt Date: 20240510
  Transmission Date: 20240716
  Serious: Yes (Death)
  Sender: FDA-Public Use
  Company Number: None

PATIENT
  Age: 55 Year
  Sex: Female

DRUGS (1)
  1. ENBREL [Suspect]
     Active Substance: BENZYL ALCOHOL\ETANERCEPT
     Indication: Rheumatoid arthritis
     Dosage: 50 MG ONCE WEEKLY
     Route: 058
     Dates: start: 20231004, end: 20240508

REACTIONS (2)
  - Hepatic cirrhosis [None]
  - Renal failure [None]

NARRATIVE: CASE EVENT DATE: 20240508
